FAERS Safety Report 8495020-4 (Version None)
Quarter: 2012Q3

REPORT INFORMATION
  Report Type: 
  Country: None (occurrence: None)
  Receive Date: 20120709
  Receipt Date: 20120702
  Transmission Date: 20120928
  Serious: Yes (Hospitalization)
  Sender: FDA-Public Use
  Company Number: PHHY2012AR057135

PATIENT

DRUGS (2)
  1. DIOVAN [Suspect]
     Indication: HYPERTENSION
     Dosage: 160 MG, DAILY
  2. RASILEZ [Suspect]
     Indication: HYPERTENSION
     Dosage: 300 MG, DAILY

REACTIONS (4)
  - EYE INFECTION [None]
  - BLOOD PRESSURE INADEQUATELY CONTROLLED [None]
  - EAR INFECTION [None]
  - PYREXIA [None]
